FAERS Safety Report 14160319 (Version 4)
Quarter: 2018Q1

REPORT INFORMATION
  Report Type: Report from Study
  Country: NL (occurrence: NL)
  Receive Date: 20171106
  Receipt Date: 20180309
  Transmission Date: 20180508
  Serious: Yes (Hospitalization, Disabling)
  Sender: FDA-Public Use
  Company Number: NL-CELGENEUS-NLD-20170508853

PATIENT
  Age: 58 Year
  Sex: Female

DRUGS (26)
  1. MPDL3280A (ATEZOLIZUMAB) [Suspect]
     Active Substance: ATEZOLIZUMAB
     Indication: NON-SMALL CELL LUNG CANCER STAGE IV
     Dosage: 1200 MG
     Route: 041
     Dates: start: 20170301, end: 20170412
  2. ABSTRAL [Concomitant]
     Active Substance: FENTANYL CITRATE
     Indication: BACK PAIN
     Route: 065
     Dates: start: 20170110
  3. NYSTATIN. [Concomitant]
     Active Substance: NYSTATIN
     Indication: CANDIDA INFECTION
     Route: 065
     Dates: start: 20170530
  4. OXYCODONE [Concomitant]
     Active Substance: OXYCODONE
     Indication: BACK PAIN
     Dosage: 20 MG
     Route: 065
     Dates: start: 20170110
  5. FENTANYL. [Concomitant]
     Active Substance: FENTANYL
     Indication: MUSCULOSKELETAL CHEST PAIN
     Route: 065
     Dates: start: 20170523
  6. AUGMENTIN [Concomitant]
     Active Substance: AMOXICILLIN\CLAVULANATE POTASSIUM
     Indication: LUNG INFECTION
     Route: 065
     Dates: start: 20170509, end: 20170516
  7. DALTEPARINE SODIQUE [Concomitant]
     Route: 065
     Dates: start: 20170606, end: 20170609
  8. PARACETAMOL [Concomitant]
     Active Substance: ACETAMINOPHEN
     Indication: BACK PAIN
     Route: 065
     Dates: start: 20170517
  9. EFEXOR [Concomitant]
     Active Substance: VENLAFAXINE HYDROCHLORIDE
     Indication: BIPOLAR DISORDER
     Route: 065
     Dates: start: 20101201
  10. FENTANYL. [Concomitant]
     Active Substance: FENTANYL
     Indication: BACK PAIN
     Route: 065
     Dates: start: 20170509
  11. ESOMEPRAZOLE [Concomitant]
     Active Substance: ESOMEPRAZOLE
     Indication: DYSPEPSIA
     Route: 065
     Dates: start: 20170518
  12. OXAZEPAM. [Concomitant]
     Active Substance: OXAZEPAM
     Indication: DYSPEPSIA
     Route: 065
     Dates: start: 20170517, end: 20170517
  13. RED BLOOD PACKED CELLS [Concomitant]
     Indication: PREMEDICATION
  14. ABRAXANE [Suspect]
     Active Substance: PACLITAXEL
     Indication: NON-SMALL CELL LUNG CANCER STAGE IV
     Dosage: 100 MG/M2
     Route: 041
     Dates: start: 20170301, end: 20170426
  15. THYRAX [Concomitant]
     Active Substance: LEVOTHYROXINE
     Indication: HYPOTHYROIDISM
     Dosage: 0.2 MG
     Route: 065
     Dates: start: 1982
  16. MIDAZOLAM [Concomitant]
     Active Substance: MIDAZOLAM HYDROCHLORIDE
     Indication: PREMEDICATION
     Route: 065
     Dates: start: 20170517, end: 20170517
  17. CARBOPLATIN. [Suspect]
     Active Substance: CARBOPLATIN
     Indication: NON-SMALL CELL LUNG CANCER STAGE IV
     Dosage: AUC=6
     Route: 041
     Dates: start: 20170301, end: 20170412
  18. CARBOPLATIN. [Suspect]
     Active Substance: CARBOPLATIN
     Route: 041
  19. MACROGOL/POTASSIUM CHLORIDE/SODIUM BICARBONATE/SODIUM CHLORIDE/SODIUM [Concomitant]
     Indication: CONSTIPATION
     Route: 065
     Dates: start: 20170113
  20. ARANESP [Concomitant]
     Active Substance: DARBEPOETIN ALFA
     Indication: ANAEMIA
     Route: 065
     Dates: start: 20170314
  21. AMITRIPTYLINE [Concomitant]
     Active Substance: AMITRIPTYLINE
     Indication: BACK PAIN
     Route: 065
     Dates: start: 20170526, end: 20170606
  22. RED BLOOD PACKED CELLS [Concomitant]
     Indication: ANAEMIA
     Route: 065
     Dates: start: 20170428, end: 20170428
  23. DICLOFENAC [Concomitant]
     Active Substance: DICLOFENAC
     Indication: BACK PAIN
     Dosage: 150  MG
     Route: 065
     Dates: start: 20170110
  24. PRIADEL [Concomitant]
     Active Substance: LITHIUM
     Indication: BIPOLAR DISORDER
     Route: 065
     Dates: start: 20101201
  25. DALTEPARINE SODIQUE [Concomitant]
     Indication: THROMBOSIS
     Route: 065
     Dates: start: 20170517, end: 20170523
  26. OXAZEPAM. [Concomitant]
     Active Substance: OXAZEPAM
     Indication: PREMEDICATION

REACTIONS (2)
  - Weight decreased [Not Recovered/Not Resolved]
  - Dyspnoea [Not Recovered/Not Resolved]

NARRATIVE: CASE EVENT DATE: 20170516
